FAERS Safety Report 4556464-6 (Version None)
Quarter: 2005Q1

REPORT INFORMATION
  Report Type: 
  Country: None (occurrence: None)
  Receive Date: 20050114
  Receipt Date: 20041230
  Transmission Date: 20050727
  Serious: Yes (Hospitalization, Other)
  Sender: FDA-Public Use
  Company Number: 2004BI000574

PATIENT
  Age: 48 Year
  Sex: Female
  Weight: 79.8331 kg

DRUGS (8)
  1. AVONEX [Suspect]
     Indication: MULTIPLE SCLEROSIS
     Dosage: 30 UG; QW; IM
     Route: 030
     Dates: start: 20030601
  2. AVONEX [Suspect]
     Indication: MULTIPLE SCLEROSIS
     Dosage: 30 UG; QW; IM
     Route: 030
  3. DITROPAN [Concomitant]
  4. LORAZEPAM [Concomitant]
  5. LOTREL [Concomitant]
  6. AMOXICILLIN [Concomitant]
  7. PERCOCET [Concomitant]
  8. NORTRIPTYLINE HCL [Concomitant]

REACTIONS (5)
  - FAECALOMA [None]
  - MUSCLE SPASMS [None]
  - PITUITARY TUMOUR BENIGN [None]
  - POLLAKIURIA [None]
  - RENAL DISORDER [None]
